FAERS Safety Report 19166600 (Version 1)
Quarter: 2021Q2

REPORT INFORMATION
  Report Type: Spontaneous
  Country: FR (occurrence: FR)
  Receive Date: 20210421
  Receipt Date: 20210421
  Transmission Date: 20210717
  Serious: Yes (Other)
  Sender: FDA-Public Use
  Company Number: FR-AVENTIS-200312661FR

PATIENT
  Age: 58 Year
  Sex: Female

DRUGS (5)
  1. LEFLUNOMIDE. [Suspect]
     Active Substance: LEFLUNOMIDE
     Dosage: 10 MG,QD
     Route: 048
     Dates: start: 20030117, end: 20030402
  2. LEFLUNOMIDE. [Suspect]
     Active Substance: LEFLUNOMIDE
     Indication: ARTHRITIS
     Dosage: 100 MG,QD
     Route: 048
     Dates: start: 20000920, end: 20000922
  3. LEFLUNOMIDE. [Suspect]
     Active Substance: LEFLUNOMIDE
     Dosage: 20 MG,QD
     Route: 048
     Dates: start: 20030403, end: 20030702
  4. LEFLUNOMIDE. [Suspect]
     Active Substance: LEFLUNOMIDE
     Dosage: 20 MG,QD
     Route: 048
     Dates: start: 20000923, end: 20001025
  5. LEFLUNOMIDE. [Suspect]
     Active Substance: LEFLUNOMIDE
     Dosage: 10 MG,QD
     Route: 048
     Dates: start: 20030703, end: 20030925

REACTIONS (12)
  - Subacute cutaneous lupus erythematosus [Recovered/Resolved]
  - Cutaneous lupus erythematosus [Recovered/Resolved]
  - Rash [Recovered/Resolved]
  - Antinuclear antibody positive [Recovered/Resolved]
  - Systemic lupus erythematosus rash [Recovered/Resolved]
  - Leukopenia [Recovered/Resolved]
  - Lymphocytic infiltration [Recovered/Resolved]
  - Antinuclear antibody increased [Recovered/Resolved]
  - Skin atrophy [Recovered/Resolved]
  - Skin lesion [Recovered/Resolved]
  - Lupus-like syndrome [Recovered/Resolved]
  - Intentional product misuse [Recovered/Resolved]

NARRATIVE: CASE EVENT DATE: 20030407
